FAERS Safety Report 5602549-2 (Version None)
Quarter: 2008Q1

REPORT INFORMATION
  Report Type: 
  Country: None (occurrence: None)
  Receive Date: 20080125
  Receipt Date: 20080124
  Transmission Date: 20080703
  Serious: Yes (Other)
  Sender: FDA-Public Use
  Company Number: D0055891A

PATIENT
  Sex: Male

DRUGS (2)
  1. AVANDIA [Suspect]
     Dosage: 4MG TWICE PER DAY
     Route: 048
  2. BONIVA [Suspect]
     Route: 065

REACTIONS (3)
  - ARTERIOSPASM CORONARY [None]
  - BLEPHAROSPASM [None]
  - BLOOD GLUCOSE INCREASED [None]
